FAERS Safety Report 18335988 (Version 1)
Quarter: 2020Q4

REPORT INFORMATION
  Report Type: Spontaneous
  Country: CN (occurrence: CN)
  Receive Date: 20201001
  Receipt Date: 20201001
  Transmission Date: 20210113
  Serious: Yes (Other)
  Sender: FDA-Public Use
  Company Number: CN-PFIZER INC-2020375418

PATIENT
  Age: 24 Year
  Sex: Female
  Weight: 44 kg

DRUGS (2)
  1. ZITHROMAX [Suspect]
     Active Substance: AZITHROMYCIN DIHYDRATE
     Indication: ANTI-INFECTIVE THERAPY
     Dosage: 1 G, 1X/DAY FOR THE FIRST DOSE
     Route: 048
     Dates: start: 20200907, end: 20200907
  2. ZITHROMAX [Suspect]
     Active Substance: AZITHROMYCIN DIHYDRATE
     Indication: GENITOURINARY CHLAMYDIA INFECTION
     Dosage: 0.5 G, 1X/DAY
     Route: 048
     Dates: start: 20200908, end: 20200910

REACTIONS (4)
  - Headache [Recovering/Resolving]
  - Off label use [Unknown]
  - Product use issue [Unknown]
  - Migraine [Recovering/Resolving]

NARRATIVE: CASE EVENT DATE: 20200907
